FAERS Safety Report 6376101-8 (Version None)
Quarter: 2009Q3

REPORT INFORMATION
  Report Type: 
  Country: None (occurrence: None)
  Receive Date: 20090921
  Receipt Date: 20090914
  Transmission Date: 20100115
  Serious: Yes (Other)
  Sender: FDA-Public Use
  Company Number: 230015M09FRA

PATIENT
  Age: 29 Year
  Sex: Female
  Weight: 48 kg

DRUGS (2)
  1. REBIF [Suspect]
     Indication: MULTIPLE SCLEROSIS
     Dosage: 44 MCG, 3 IN 1 WEEKS, SUBCUTANEOUS
     Route: 058
     Dates: start: 20050921, end: 20081015
  2. NEO-MERCAZOLE TAB [Concomitant]

REACTIONS (3)
  - FOCAL SEGMENTAL GLOMERULOSCLEROSIS [None]
  - NEPHROTIC SYNDROME [None]
  - RENAL FAILURE [None]
